FAERS Safety Report 17419140 (Version 2)
Quarter: 2020Q2

REPORT INFORMATION
  Report Type: Spontaneous
  Country: US (occurrence: US)
  Receive Date: 20200214
  Receipt Date: 20200421
  Transmission Date: 20200713
  Serious: No
  Sender: FDA-Public Use
  Company Number: US-LEO PHARMA-328053

PATIENT
  Age: 69 Year
  Sex: Female

DRUGS (1)
  1. DAIVOBET [Suspect]
     Active Substance: BETAMETHASONE DIPROPIONATE\CALCIPOTRIENE
     Indication: PSORIASIS
     Dosage: CALCIPOTRIENE 0.005% AND BETAMETHASONE DIPROPIONATE 0.064%
     Route: 061
     Dates: start: 202001, end: 202001

REACTIONS (7)
  - Application site pain [Recovered/Resolved]
  - Feeling hot [Recovered/Resolved]
  - Skin burning sensation [Recovered/Resolved]
  - Pain [Recovered/Resolved]
  - Skin fissures [Recovered/Resolved]
  - Depression [Not Recovered/Not Resolved]
  - Erythema [Not Recovered/Not Resolved]
